FAERS Safety Report 6726641-4 (Version None)
Quarter: 2010Q2

REPORT INFORMATION
  Report Type: 
  Country: None (occurrence: None)
  Receive Date: 20100514
  Receipt Date: 20100506
  Transmission Date: 20101027
  Serious: Yes (Hospitalization)
  Sender: FDA-Public Use
  Company Number: US-WYE-H14300510

PATIENT
  Sex: Female

DRUGS (13)
  1. TEMSIROLIMUS [Suspect]
     Indication: RENAL CELL CARCINOMA
     Route: 042
     Dates: start: 20091231, end: 20100311
  2. TEMSIROLIMUS [Suspect]
     Route: 042
     Dates: start: 20100401
  3. HYDROCHLOROTHIAZIDE [Concomitant]
     Indication: HYPERTENSION
     Dosage: UNKNOWN
     Dates: start: 20090203, end: 20100324
  4. CYANOCOBALAMIN [Concomitant]
     Indication: MEDICAL DIET
     Dosage: UNKNOWN
     Dates: start: 20090203
  5. ERGOCALCIFEROL [Concomitant]
     Indication: MEDICAL DIET
     Dosage: UNKNOWN
     Dates: start: 20090203
  6. REGLAN [Concomitant]
     Indication: CONSTIPATION
     Dosage: UNKNOWN
     Dates: start: 20100311, end: 20100324
  7. ENSURE [Concomitant]
     Indication: MEDICAL DIET
     Dosage: UNKNOWN
     Dates: start: 20090716
  8. PROTONIX [Concomitant]
     Indication: GASTROOESOPHAGEAL REFLUX DISEASE
     Dosage: UNKNOWN
     Dates: start: 20090813
  9. COLACE [Concomitant]
     Indication: CONSTIPATION
     Dosage: UNKNOWN
     Dates: start: 20090813
  10. OXYCODONE [Concomitant]
     Indication: PAIN
     Dosage: UNKNOWN
     Dates: start: 20100218
  11. LOVENOX [Concomitant]
     Indication: THROMBOSIS
     Dosage: UNKNOWN
     Dates: start: 20100225, end: 20100324
  12. CALCIUM [Concomitant]
     Indication: MEDICAL DIET
     Dosage: UNKNOWN
     Dates: start: 20100203
  13. WELLBUTRIN XL [Concomitant]
     Indication: DEPRESSION

REACTIONS (3)
  - ASCITES [None]
  - CONDITION AGGRAVATED [None]
  - OEDEMA PERIPHERAL [None]
